FAERS Safety Report 21986606 (Version 2)
Quarter: 2024Q2

REPORT INFORMATION
  Report Type: Spontaneous
  Country: US (occurrence: US)
  Receive Date: 20230213
  Receipt Date: 20240621
  Transmission Date: 20240716
  Serious: No
  Sender: FDA-Public Use
  Company Number: US-PFIZER INC-PV202300026038

PATIENT
  Age: 53 Year
  Sex: Female

DRUGS (1)
  1. IBRANCE [Suspect]
     Active Substance: PALBOCICLIB
     Dosage: 100 MG, DAILY (1 TABLET DAILY ON DAYS 1 THROUGH 21 OF 28 DAYS)
     Dates: start: 20230216

REACTIONS (1)
  - Emotional disorder [Unknown]
